FAERS Safety Report 5150318-2 (Version None)
Quarter: 2006Q4

REPORT INFORMATION
  Report Type: 
  Country: None (occurrence: None)
  Receive Date: 20061108
  Receipt Date: 20061020
  Transmission Date: 20070319
  Serious: Yes (Other)
  Sender: FDA-Public Use
  Company Number: GB-2006-019701

PATIENT
  Age: 40 Year
  Sex: Female
  Weight: 57 kg

DRUGS (5)
  1. BETAFERON (INTERFERON BETA - 1B)  INJECTION, 250?G [Suspect]
     Dosage: 8 MIU, SUBCUTANEOUS
     Route: 058
     Dates: start: 20050815, end: 20060714
  2. DETRUSITOL (TOLTERODINE L-TARTRATE)TABLET [Concomitant]
  3. CITALOPRAM HYDROBROMIDE [Concomitant]
  4. MOVICOL (MACROGOL, SODIUM BICARBONATE) [Concomitant]
  5. VITAMINS [Concomitant]

REACTIONS (2)
  - ABASIA [None]
  - ARTHRITIS [None]
